FAERS Safety Report 6647475-5 (Version None)
Quarter: 2010Q1

REPORT INFORMATION
  Report Type: 
  Country: None (occurrence: None)
  Receive Date: 20100323
  Receipt Date: 20100323
  Transmission Date: 20100710
  Serious: No
  Sender: FDA-Public Use
  Company Number: None

PATIENT
  Age: 64 Year
  Sex: Male
  Weight: 77.77 kg

DRUGS (1)
  1. AMIODARONE HCL [Suspect]
     Dosage: 150 MG ONCE IV
     Route: 042
     Dates: start: 20090220, end: 20090220

REACTIONS (1)
  - RESPIRATORY DISTRESS [None]
